FAERS Safety Report 7099384-8 (Version None)
Quarter: 2010Q4

REPORT INFORMATION
  Report Type: 
  Country: None (occurrence: None)
  Receive Date: 20101105
  Receipt Date: 20101021
  Transmission Date: 20110411
  Serious: Yes (Other)
  Sender: FDA-Public Use
  Company Number: AUR-APL-2010-02680

PATIENT
  Age: 52 Year
  Sex: Male

DRUGS (1)
  1. TERBINAFINE HCL [Suspect]
     Indication: FUNGAL INFECTION
     Dosage: 250MG-ORAL
     Route: 048
     Dates: start: 20100910, end: 20101010

REACTIONS (1)
  - HEPATITIS ACUTE [None]
